FAERS Safety Report 15221206 (Version 2)
Quarter: 2019Q4

REPORT INFORMATION
  Report Type: Report from Study
  Country: TW (occurrence: TW)
  Receive Date: 20180731
  Receipt Date: 20191025
  Transmission Date: 20200122
  Serious: Yes (Death, Hospitalization)
  Sender: FDA-Public Use
  Company Number: TW-INCYTE CORPORATION-2018IN004379

PATIENT

DRUGS (1)
  1. JAKAVI [Suspect]
     Active Substance: RUXOLITINIB
     Indication: MYELOFIBROSIS
     Dosage: 15 MG, BID
     Route: 048
     Dates: start: 20170606, end: 20180720

REACTIONS (3)
  - Rash [Not Recovered/Not Resolved]
  - Herpes zoster [Not Recovered/Not Resolved]
  - Herpes zoster disseminated [Fatal]

NARRATIVE: CASE EVENT DATE: 20180430
